FAERS Safety Report 12909903 (Version 4)
Quarter: 2016Q4

REPORT INFORMATION
  Report Type: Spontaneous
  Country: PL (occurrence: PL)
  Receive Date: 20161104
  Receipt Date: 20161125
  Transmission Date: 20170207
  Serious: Yes (Other)
  Sender: FDA-Public Use
  Company Number: PL-ROCHE-1850387

PATIENT
  Sex: Female

DRUGS (2)
  1. DDP [Concomitant]
     Active Substance: CISPLATIN
     Route: 042
  2. XELODA [Suspect]
     Active Substance: CAPECITABINE
     Indication: BREAST CANCER
     Dosage: FOR 6 CYCLES
     Route: 065
     Dates: start: 20151204

REACTIONS (2)
  - Renal failure [Unknown]
  - Hydronephrosis [Unknown]

NARRATIVE: CASE EVENT DATE: 2016
